FAERS Safety Report 13289230 (Version 1)
Quarter: 2017Q1

REPORT INFORMATION
  Report Type: Spontaneous
  Country: US (occurrence: US)
  Receive Date: 20170302
  Receipt Date: 20170302
  Transmission Date: 20170428
  Serious: No
  Sender: FDA-Public Use
  Company Number: US-SHIRE-US201703296

PATIENT

DRUGS (1)
  1. XIIDRA [Suspect]
     Active Substance: LIFITEGRAST
     Indication: ENDOCRINE OPHTHALMOPATHY
     Dosage: UNK, UNKNOWN
     Route: 047

REACTIONS (2)
  - Product use issue [Unknown]
  - No adverse event [Unknown]
